FAERS Safety Report 21715986 (Version 2)
Quarter: 2024Q1

REPORT INFORMATION
  Report Type: Spontaneous
  Country: DE (occurrence: DE)
  Receive Date: 20221212
  Receipt Date: 20240109
  Transmission Date: 20240409
  Serious: Yes (Other)
  Sender: FDA-Public Use
  Company Number: DE-ROCHE-3195186

PATIENT
  Age: 55 Year
  Sex: Male

DRUGS (14)
  1. FLUOROURACIL [Suspect]
     Active Substance: FLUOROURACIL
     Indication: Colorectal cancer metastatic
     Dosage: 400 MILLIGRAM/SQ. METER (400 MG/SQM D1)
     Route: 065
  2. FLUOROURACIL [Suspect]
     Active Substance: FLUOROURACIL
     Dosage: 600 MILLIGRAM/SQ. METER (600 MG/SQM D1+2, Q14D)
     Route: 065
  3. OXALIPLATIN [Suspect]
     Active Substance: OXALIPLATIN
     Indication: Colorectal cancer metastatic
     Dosage: 85 MILLIGRAM/SQ. METER, 85 MG/SQM D1
     Route: 065
  4. IRINOTECAN [Suspect]
     Active Substance: IRINOTECAN
     Indication: Colorectal cancer metastatic
     Dosage: 180 MILLIGRAM/SQ. METER (180 MG/SQM D1)
     Route: 065
  5. BEVACIZUMAB [Suspect]
     Active Substance: BEVACIZUMAB
     Indication: Colorectal cancer metastatic
     Dosage: 5 MILLIGRAM/KILOGRAM, Q2W
     Route: 065
  6. LEUCOVORIN [Suspect]
     Active Substance: LEUCOVORIN\LEUCOVORIN CALCIUM
     Indication: Colorectal cancer metastatic
     Dosage: 200 MILLIGRAM/SQ. METER (200 MG/SQM D1)
     Route: 065
  7. LEUCOVORIN [Suspect]
     Active Substance: LEUCOVORIN\LEUCOVORIN CALCIUM
     Dosage: 600 MILLIGRAM/SQ.METER (600 MG/SQM D1 + 2, Q14D)
     Route: 065
  8. CETUXIMAB [Suspect]
     Active Substance: CETUXIMAB
     Indication: Colorectal cancer metastatic
     Dosage: 250 MILLIGRAM/SQ. METER, QW
     Route: 065
  9. PEMBROLIZUMAB [Suspect]
     Active Substance: PEMBROLIZUMAB
     Indication: Colorectal cancer metastatic
     Dosage: 200 MILLIGRAM/SQ. METER, Q21D, TOTAL OF 9 CYCLES
     Route: 065
     Dates: start: 201712, end: 2018
  10. PEMBROLIZUMAB [Suspect]
     Active Substance: PEMBROLIZUMAB
     Indication: Adenocarcinoma of colon
  11. IPILIMUMAB [Concomitant]
     Active Substance: IPILIMUMAB
     Dosage: 3MG/KG IN CYCLE 1,FOLLOWED BY 1 MG/KG IN CYCLE 2-4
     Route: 065
  12. IPILIMUMAB [Concomitant]
     Active Substance: IPILIMUMAB
     Dosage: 1MG/KG, CYCLE 3 AND 4 WERE DELAYED
     Route: 065
  13. NIVOLUMAB [Concomitant]
     Active Substance: NIVOLUMAB
     Dosage: 3 MILLIGRAM/KILOGRAM (FROM CYCLE 2 ON)
     Route: 065
  14. NIVOLUMAB [Concomitant]
     Active Substance: NIVOLUMAB
     Dosage: 1 MILLIGRAM/KILOGRAM ( IN CYCLE 1)
     Route: 065

REACTIONS (4)
  - Disease progression [Unknown]
  - Tumour pseudoprogression [Recovering/Resolving]
  - Immune-mediated hepatic disorder [Unknown]
  - Drug resistance [Unknown]
